FAERS Safety Report 4835158-3 (Version None)
Quarter: 2005Q4

REPORT INFORMATION
  Report Type: 
  Country: None (occurrence: None)
  Receive Date: 20051122
  Receipt Date: 20050830
  Transmission Date: 20060501
  Serious: Yes (Hospitalization, Disabling)
  Sender: FDA-Public Use
  Company Number: US-MERCK-0508USA05007

PATIENT
  Age: 77 Year
  Sex: Male
  Weight: 89 kg

DRUGS (9)
  1. VIOXX [Suspect]
     Indication: FIBROMYALGIA
     Route: 048
     Dates: start: 20000414, end: 20010926
  2. VIOXX [Suspect]
     Route: 048
     Dates: start: 20000414, end: 20010926
  3. ENDODAN [Concomitant]
     Indication: PAIN
     Route: 065
     Dates: start: 20001218, end: 20010101
  4. ACETAMINOPHEN AND HYDROCODONE BITARTRATE [Concomitant]
     Route: 065
     Dates: start: 20001227, end: 20010701
  5. CARDURA [Concomitant]
     Indication: HYPERTENSION
     Route: 065
     Dates: start: 19980720, end: 20010801
  6. DIOVAN [Concomitant]
     Indication: HYPERTENSION
     Route: 065
     Dates: start: 19991007, end: 20010801
  7. SYNTHROID [Concomitant]
     Indication: HYPOTHYROIDISM
     Route: 065
     Dates: start: 19980728
  8. ASPIRIN [Concomitant]
     Route: 065
     Dates: start: 19890101, end: 20010101
  9. ASPIRIN [Concomitant]
     Route: 065
     Dates: start: 19890101, end: 20010101

REACTIONS (22)
  - ANXIETY [None]
  - ARTERIOSCLEROSIS [None]
  - ARTHRITIS [None]
  - ATRIAL FIBRILLATION [None]
  - BACTERIAL INFECTION [None]
  - CEREBROVASCULAR ACCIDENT [None]
  - CHEST PAIN [None]
  - CONVULSION [None]
  - DEPRESSION [None]
  - DYSPEPSIA [None]
  - FIBROMYALGIA [None]
  - GASTROOESOPHAGEAL REFLUX DISEASE [None]
  - HEPATIC ENZYME INCREASED [None]
  - HERPES VIRUS INFECTION [None]
  - HORMONE LEVEL ABNORMAL [None]
  - IMPETIGO [None]
  - INFECTION [None]
  - OEDEMA [None]
  - POLYMYOSITIS [None]
  - PYREXIA [None]
  - SINUS DISORDER [None]
  - URINARY TRACT INFECTION [None]
